FAERS Safety Report 16303442 (Version 2)
Quarter: 2019Q2

REPORT INFORMATION
  Report Type: Spontaneous
  Country: US (occurrence: US)
  Receive Date: 20190513
  Receipt Date: 20190517
  Transmission Date: 20190711
  Serious: No
  Sender: FDA-Public Use
  Company Number: US-BAYER-2019-093383

PATIENT
  Age: 5 Year
  Sex: Male

DRUGS (3)
  1. CLARITIN [Suspect]
     Active Substance: LORATADINE
     Indication: NASOPHARYNGITIS
  2. CLARITIN [Suspect]
     Active Substance: LORATADINE
     Indication: SEASONAL ALLERGY
     Dosage: 1 DF
     Route: 048
     Dates: start: 20190508, end: 20190508
  3. CLARITIN [Suspect]
     Active Substance: LORATADINE
     Indication: HYPERSENSITIVITY

REACTIONS (7)
  - Eye swelling [Unknown]
  - Vomiting [Recovered/Resolved]
  - Poor quality product administered [None]
  - Malaise [Recovered/Resolved]
  - Product taste abnormal [None]
  - Abdominal discomfort [Recovered/Resolved]
  - Product use in unapproved indication [None]

NARRATIVE: CASE EVENT DATE: 20190508
